FAERS Safety Report 14758878 (Version 1)
Quarter: 2018Q2

REPORT INFORMATION
  Report Type: Report from Study
  Country: US (occurrence: US)
  Receive Date: 20180413
  Receipt Date: 20180413
  Transmission Date: 20180711
  Serious: Yes (Death, Hospitalization)
  Sender: FDA-Public Use
  Company Number: US-VERTEX PHARMACEUTICALS-2018-000152

PATIENT
  Age: 60 Year
  Sex: Male

DRUGS (10)
  1. FORTEO [Concomitant]
     Active Substance: TERIPARATIDE
  2. NAPROXEN. [Concomitant]
     Active Substance: NAPROXEN
  3. KALYDECO [Suspect]
     Active Substance: IVACAFTOR
     Indication: CYSTIC FIBROSIS
     Dosage: 150 MG, BID
     Route: 048
     Dates: start: 20170823, end: 20180407
  4. BACLOFEN. [Concomitant]
     Active Substance: BACLOFEN
  5. MORPHINE [Concomitant]
     Active Substance: MORPHINE
  6. TESTOSTERONE. [Concomitant]
     Active Substance: TESTOSTERONE
  7. PULMOZYME [Concomitant]
     Active Substance: DORNASE ALFA
  8. AZITHROMYCIN ANHYDROUS. [Concomitant]
     Active Substance: AZITHROMYCIN ANHYDROUS
  9. FUROSEMIDE. [Concomitant]
     Active Substance: FUROSEMIDE
  10. CITALOPRAM [Concomitant]
     Active Substance: CITALOPRAM HYDROBROMIDE

REACTIONS (2)
  - Death [Fatal]
  - Hospitalisation [Not Recovered/Not Resolved]

NARRATIVE: CASE EVENT DATE: 201712
